FAERS Safety Report 14554471 (Version 1)
Quarter: 2018Q1

REPORT INFORMATION
  Report Type: Spontaneous
  Country: US (occurrence: US)
  Receive Date: 20180218
  Receipt Date: 20180218
  Transmission Date: 20180509
  Serious: Yes (Disabling)
  Sender: FDA-Public Use
  Company Number: None

PATIENT
  Age: 59 Year
  Sex: Female
  Weight: 113.85 kg

DRUGS (9)
  1. ANASTRAZOLE [Suspect]
     Active Substance: ANASTROZOLE
     Indication: OESTROGEN RECEPTOR POSITIVE BREAST CANCER
     Dosage: ?          QUANTITY:1 TABLET(S);?
     Route: 048
     Dates: start: 20170601, end: 20180105
  2. MULTI VITAMIN [Concomitant]
     Active Substance: VITAMINS
  3. FLONASE [Concomitant]
     Active Substance: FLUTICASONE PROPIONATE
  4. ZOLOFT [Concomitant]
     Active Substance: SERTRALINE HYDROCHLORIDE
  5. OXYCONTIN [Concomitant]
     Active Substance: OXYCODONE HYDROCHLORIDE
  6. SYNTHROID [Concomitant]
     Active Substance: LEVOTHYROXINE SODIUM
  7. VITAMIN D [Concomitant]
     Active Substance: CHOLECALCIFEROL
  8. ANASTRAZOLE [Suspect]
     Active Substance: ANASTROZOLE
     Indication: INVASIVE DUCTAL BREAST CARCINOMA
     Dosage: ?          QUANTITY:1 TABLET(S);?
     Route: 048
     Dates: start: 20170601, end: 20180105
  9. VIT B [Concomitant]
     Active Substance: VITAMIN B

REACTIONS (6)
  - Hyperhidrosis [None]
  - Joint stiffness [None]
  - Insomnia [None]
  - Arthralgia [None]
  - Muscular weakness [None]
  - Product substitution issue [None]

NARRATIVE: CASE EVENT DATE: 20171002
